FAERS Safety Report 7700232-0 (Version None)
Quarter: 2011Q3

REPORT INFORMATION
  Report Type: 
  Country: None (occurrence: None)
  Receive Date: 20110822
  Receipt Date: 20110808
  Transmission Date: 20111222
  Serious: Yes (Death, Other)
  Sender: FDA-Public Use
  Company Number: US-TYCO HEALTHCARE/MALLINCKRODT-T201101561

PATIENT
  Age: 38 Year
  Sex: Male

DRUGS (4)
  1. OXYMORPHONE [Suspect]
     Indication: BACK PAIN
     Dosage: UNK
  2. ANTIDEPRESSANTS [Suspect]
  3. OXYCODONE HCL [Suspect]
     Indication: BACK PAIN
     Dosage: UNK
  4. ATIVAN [Suspect]
     Indication: ANXIETY
     Dosage: UNK

REACTIONS (2)
  - DELUSION [None]
  - DRUG INTERACTION [None]
